FAERS Safety Report 23804252 (Version 8)
Quarter: 2024Q3

REPORT INFORMATION
  Report Type: Spontaneous
  Country: DE (occurrence: DE)
  Receive Date: 20240501
  Receipt Date: 20240730
  Transmission Date: 20241016
  Serious: No
  Sender: PFIZER
  Company Number: DE-PFIZER INC-202400092749

PATIENT
  Age: 72 Year
  Sex: Male

DRUGS (1)
  1. ENBREL [Suspect]
     Active Substance: BENZYL ALCOHOL\ETANERCEPT
     Dosage: UNK UNK, WEEKLY
     Route: 058

REACTIONS (3)
  - Injection site pain [Unknown]
  - Device delivery system issue [Unknown]
  - Drug dose omission by device [Unknown]
